FAERS Safety Report 18640915 (Version 2)
Quarter: 2021Q3

REPORT INFORMATION
  Report Type: Other
  Country: US (occurrence: US)
  Receive Date: 20201221
  Receipt Date: 20210809
  Transmission Date: 20211014
  Serious: Yes (Other)
  Sender: FDA-Public Use
  Company Number: US-ROCHE-2731088

PATIENT
  Age: 37 Year
  Sex: Female
  Weight: 58.11 kg

DRUGS (12)
  1. TAMSULOSIN [Concomitant]
     Active Substance: TAMSULOSIN
     Indication: URINARY TRACT INFECTION
     Dosage: 2 TABLETS TAKIEN IN THE MORNING
  2. OCREVUS [Suspect]
     Active Substance: OCRELIZUMAB
     Indication: MULTIPLE SCLEROSIS
     Dosage: DATES OF TREATMENT: 29/APR/2020 AND 15/OCT/2020.
     Route: 042
     Dates: start: 20200407
  3. OCREVUS [Suspect]
     Active Substance: OCRELIZUMAB
     Dosage: (PRESCRIBED AS 300 MG ON DAY 1 AND DAY 15 AND 600 MG ONCE IN 6 MONTHS)
     Route: 042
     Dates: start: 20200415
  4. IMITREX [Concomitant]
     Active Substance: SUMATRIPTAN SUCCINATE
     Indication: MIGRAINE
     Dosage: ONCE AS NEEDED
     Route: 048
  5. EXCEDRIN (UNITED STATES) [Concomitant]
     Indication: MIGRAINE
  6. BACLOFEN. [Concomitant]
     Active Substance: BACLOFEN
     Route: 048
  7. ASPIRIN. [Concomitant]
     Active Substance: ASPIRIN
     Indication: CEREBROVASCULAR ACCIDENT
     Route: 048
  8. AMPYRA [Concomitant]
     Active Substance: DALFAMPRIDINE
     Dosage: ONE DOSE EVERY 12 HOURS OR 2X/DAY
  9. COLACE [Concomitant]
     Active Substance: DOCUSATE SODIUM
     Route: 048
  10. ZOLOFT [Concomitant]
     Active Substance: SERTRALINE HYDROCHLORIDE
     Dosage: 1.5 TABLET DAILY
     Route: 048
  11. PROVIGIL [Concomitant]
     Active Substance: MODAFINIL
  12. ACYCLOVIR. [Concomitant]
     Active Substance: ACYCLOVIR
     Indication: GENITAL HERPES
     Route: 048

REACTIONS (8)
  - Gait disturbance [Unknown]
  - Staphylococcal infection [Unknown]
  - Hypoaesthesia [Not Recovered/Not Resolved]
  - Anxiety [Unknown]
  - Amnesia [Unknown]
  - Paraesthesia [Unknown]
  - Urinary tract infection [Recovered/Resolved]
  - Furuncle [Unknown]

NARRATIVE: CASE EVENT DATE: 20201125
